FAERS Safety Report 15875690 (Version 2)
Quarter: 2020Q1

REPORT INFORMATION
  Report Type: Other
  Country: US (occurrence: US)
  Receive Date: 20190126
  Receipt Date: 20200126
  Transmission Date: 20200409
  Serious: No
  Sender: FDA-Public Use
  Company Number: US-ACORDA-ACO_155739_2018

PATIENT
  Age: 50 Year
  Sex: Female

DRUGS (3)
  1. AMPYRA [Suspect]
     Active Substance: DALFAMPRIDINE
     Dosage: 10 UNK
     Route: 065
     Dates: start: 20180831
  2. AMPYRA [Suspect]
     Active Substance: DALFAMPRIDINE
     Indication: MULTIPLE SCLEROSIS
     Dosage: 10 MILLIGRAM, BID
     Route: 065
     Dates: start: 20180901
  3. AMPYRA [Suspect]
     Active Substance: DALFAMPRIDINE
     Dosage: UNK
     Route: 065
     Dates: start: 201811

REACTIONS (4)
  - Mobility decreased [Unknown]
  - Therapy cessation [Unknown]
  - Fall [Unknown]
  - Product dose omission [Unknown]

NARRATIVE: CASE EVENT DATE: 20180831
